FAERS Safety Report 18200501 (Version 1)
Quarter: 2020Q3

REPORT INFORMATION
  Report Type: Spontaneous
  Country: US (occurrence: US)
  Receive Date: 20200826
  Receipt Date: 20200826
  Transmission Date: 20201103
  Serious: Yes (Hospitalization, Other)
  Sender: FDA-Public Use
  Company Number: US-PURDUE-USA-2020-0162969

PATIENT
  Sex: Female

DRUGS (3)
  1. BUTRANS [Suspect]
     Active Substance: BUPRENORPHINE
     Indication: SCOLIOSIS
     Dosage: UNK
     Route: 048
     Dates: start: 2010
  2. DILAUDID [Suspect]
     Active Substance: HYDROMORPHONE HYDROCHLORIDE
     Indication: SCOLIOSIS
     Dosage: UNK
     Route: 048
     Dates: start: 2010
  3. OXYCONTIN [Suspect]
     Active Substance: OXYCODONE HYDROCHLORIDE
     Indication: SCOLIOSIS
     Dosage: UNK
     Route: 048
     Dates: start: 2010

REACTIONS (5)
  - Drug tolerance [Unknown]
  - Drug dependence [Unknown]
  - Illness [Unknown]
  - Withdrawal syndrome [Unknown]
  - Spinal operation [Unknown]

NARRATIVE: CASE EVENT DATE: 2013
